FAERS Safety Report 18680915 (Version 2)
Quarter: 2021Q1

REPORT INFORMATION
  Report Type: Report from Study
  Country: CA (occurrence: CA)
  Receive Date: 20201230
  Receipt Date: 20210108
  Transmission Date: 20210419
  Serious: Yes (Other)
  Sender: FDA-Public Use
  Company Number: CA-GLAXOSMITHKLINE-CA2020AMR254805

PATIENT
  Sex: Female

DRUGS (4)
  1. SALBUTAMOL SULPHATE [Suspect]
     Active Substance: ALBUTEROL SULFATE
     Indication: ASTHMA
     Dosage: UNK, 100 MCG, AS NEEDED
  2. PENICILLIN V POTASSIUM. [Suspect]
     Active Substance: PENICILLIN V POTASSIUM
     Indication: PRODUCT USED FOR UNKNOWN INDICATION
     Dosage: UNK
  3. BREO ELLIPTA [Suspect]
     Active Substance: FLUTICASONE FUROATE\VILANTEROL TRIFENATATE
     Indication: ASTHMA
     Dosage: UNK UNK, QD, 200 MCG
     Route: 055
  4. INCRUSE ELLIPTA [Suspect]
     Active Substance: UMECLIDINIUM BROMIDE
     Indication: ASTHMA
     Dosage: UNK, QD, 62.5 MCG
     Route: 055

REACTIONS (8)
  - Wheezing [Unknown]
  - Surgery [Unknown]
  - Sleep disorder due to a general medical condition [Unknown]
  - Vocal cord dysfunction [Unknown]
  - Loss of personal independence in daily activities [Unknown]
  - Anaphylactic reaction [Unknown]
  - Therapeutic product effect incomplete [Unknown]
  - Asthma [Unknown]

NARRATIVE: CASE EVENT DATE: 2013
